FAERS Safety Report 13982424 (Version 1)
Quarter: 2017Q3

REPORT INFORMATION
  Report Type: Spontaneous
  Country: GB (occurrence: GB)
  Receive Date: 20170918
  Receipt Date: 20170918
  Transmission Date: 20171128
  Serious: Yes (Other)
  Sender: FDA-Public Use
  Company Number: GB-ROCHE-1994761

PATIENT
  Age: 38 Year
  Sex: Female
  Weight: 62.8 kg

DRUGS (1)
  1. TRASTUZUMAB. [Suspect]
     Active Substance: TRASTUZUMAB
     Indication: BREAST CANCER
     Route: 058
     Dates: start: 20170621

REACTIONS (1)
  - Injection site hypoaesthesia [Recovered/Resolved]

NARRATIVE: CASE EVENT DATE: 20170626
